FAERS Safety Report 7018469-5 (Version None)
Quarter: 2010Q3

REPORT INFORMATION
  Report Type: 
  Country: None (occurrence: None)
  Receive Date: 20100928
  Receipt Date: 20100914
  Transmission Date: 20110219
  Serious: Yes (Other)
  Sender: FDA-Public Use
  Company Number: FR-JNJFOC-20090701913

PATIENT
  Sex: Female
  Weight: 56 kg

DRUGS (9)
  1. REMICADE [Suspect]
     Indication: CROHN'S DISEASE
     Dosage: 21 WEEKS PREGNANT
     Route: 042
  2. REMICADE [Suspect]
     Dosage: 15 WEEKS PREGNANT
     Route: 042
  3. REMICADE [Suspect]
     Dosage: 9 WEEKS PREGNANT
     Route: 042
  4. REMICADE [Suspect]
     Dosage: 3 WEEKS PREGNANT
     Route: 042
  5. REMICADE [Suspect]
     Route: 042
  6. REMICADE [Suspect]
     Route: 042
  7. REMICADE [Suspect]
     Route: 042
  8. REMICADE [Suspect]
     Route: 042
  9. SPASFON [Concomitant]
     Indication: PAIN

REACTIONS (2)
  - DRUG EXPOSURE DURING PREGNANCY [None]
  - PANCREATIC NEOPLASM [None]
